FAERS Safety Report 4326738-2 (Version None)
Quarter: 2004Q1

REPORT INFORMATION
  Report Type: 
  Country: None (occurrence: None)
  Receive Date: 20040322
  Receipt Date: 20031201
  Transmission Date: 20041129
  Serious: No
  Sender: FDA-Public Use
  Company Number: PHEH2003US10956

PATIENT
  Age: 70 Year
  Sex: Female

DRUGS (4)
  1. ZOLEDRONATE (ZOLEDRONATE) SOLUTION FOR INJECTION [Suspect]
     Indication: METASTASES TO BONE
     Dosage: 4 MG, Q4WKS, INFUSION
     Dates: start: 20030401
  2. FASLODEX (FULVESTRANT) [Concomitant]
  3. FUROSEMIDE [Concomitant]
  4. CALCIUM WITH VITAMIN D (CALCIUM SODIUM LACTATE) [Concomitant]

REACTIONS (1)
  - RADIOISOTOPE SCAN ABNORMAL [None]
